FAERS Safety Report 5245580-1 (Version None)
Quarter: 2007Q1

REPORT INFORMATION
  Report Type: 
  Country: None (occurrence: None)
  Receive Date: 20070216
  Receipt Date: 20070212
  Transmission Date: 20070707
  Serious: No
  Sender: FDA-Public Use
  Company Number: 200612AGG00525

PATIENT
  Age: 72 Year
  Sex: Male

DRUGS (11)
  1. AGGRASTAT (AGGRASTAT (TIROFIBAN HCL)) (14 ML, 13 ML) [Suspect]
     Indication: MYOCARDIAL INFARCTION
     Dosage: (14 ML 13 ML)
     Dates: start: 20061115, end: 20061115
  2. AGGRASTAT (AGGRASTAT (TIROFIBAN HCL)) (14 ML, 13 ML) [Suspect]
     Indication: MYOCARDIAL INFARCTION
     Dosage: (14 ML 13 ML)
     Dates: start: 20061115, end: 20061115
  3. HEPARIN [Concomitant]
  4. SIMVASTATIN [Concomitant]
  5. CLOPIDOGREL BISULFATE [Concomitant]
  6. CLEXANE [Concomitant]
  7. ASPIRIN [Concomitant]
  8. IMERON [Concomitant]
  9. METOPROLOL SUCCINATE [Concomitant]
  10. NITROGLYCERIN [Concomitant]
  11. RAMIPRIL [Concomitant]

REACTIONS (9)
  - BRONCHITIS CHRONIC [None]
  - COAGULATION TIME PROLONGED [None]
  - CONDITION AGGRAVATED [None]
  - HAEMATOMA [None]
  - HAEMOPTYSIS [None]
  - OVERDOSE [None]
  - PULMONARY VASCULAR DISORDER [None]
  - PUNCTURE SITE PAIN [None]
  - VASCULAR INJURY [None]
